FAERS Safety Report 6848287-X (Version None)
Quarter: 2010Q3

REPORT INFORMATION
  Report Type: 
  Country: None (occurrence: None)
  Receive Date: 20100716
  Receipt Date: 20100706
  Transmission Date: 20110219
  Serious: Yes (Hospitalization)
  Sender: FDA-Public Use
  Company Number: NL-JNJFOC-20100701921

PATIENT
  Sex: Male

DRUGS (4)
  1. REMICADE [Suspect]
     Indication: CROHN'S DISEASE
     Route: 042
  2. REMICADE [Suspect]
     Route: 042
  3. METHOTREXATE [Concomitant]
     Indication: CROHN'S DISEASE
     Route: 065
  4. FOLIC ACID [Concomitant]
     Dosage: IN COMBINATION WITH METHOTREXATE
     Route: 065

REACTIONS (1)
  - ILEAL STENOSIS [None]
